FAERS Safety Report 7925507-1 (Version None)
Quarter: 2011Q4

REPORT INFORMATION
  Report Type: 
  Country: None (occurrence: None)
  Receive Date: 20111118
  Receipt Date: 20110407
  Transmission Date: 20120403
  Serious: No
  Sender: FDA-Public Use
  Company Number: US-AMGEN-USASP2011018714

PATIENT
  Age: 42 Year
  Sex: Female

DRUGS (1)
  1. ENBREL [Suspect]
     Indication: RHEUMATOID ARTHRITIS
     Dosage: 50 MG, QWK
     Dates: start: 20110217, end: 20110401

REACTIONS (9)
  - RHINORRHOEA [None]
  - RESPIRATORY TRACT INFECTION [None]
  - NASOPHARYNGITIS [None]
  - OESOPHAGEAL ULCER [None]
  - UPPER RESPIRATORY TRACT CONGESTION [None]
  - PYREXIA [None]
  - LUNG INFECTION [None]
  - OROPHARYNGEAL PAIN [None]
  - MOUTH ULCERATION [None]
